FAERS Safety Report 5449300-7 (Version None)
Quarter: 2007Q3

REPORT INFORMATION
  Report Type: 
  Country: None (occurrence: None)
  Receive Date: 20070907
  Receipt Date: 20070827
  Transmission Date: 20080115
  Serious: Yes (Death, Hospitalization)
  Sender: FDA-Public Use
  Company Number: GXKR2007FR07404

PATIENT
  Sex: Male

DRUGS (6)
  1. METHYLPREDNISOLONE [Suspect]
     Indication: IMMUNOSUPPRESSANT DRUG THERAPY
     Dosage: 2 MG/KG, QD, 0.35 MG/KG, QD
  2. CYCLOSPORINE [Suspect]
     Indication: IMMUNOSUPPRESSANT DRUG THERAPY
     Dosage: 5 MG/KG, 7 MG/KG, QD;
  3. AZATHIOPRINE [Suspect]
     Indication: IMMUNOSUPPRESSANT DRUG THERAPY
  4. MYCOPHENOLATE MOFETIL [Suspect]
     Indication: IMMUNOSUPPRESSANT DRUG THERAPY
     Dosage: 600 MG/M2, 400 MG/M2,
  5. PREDNISONE [Suspect]
     Indication: IMMUNOSUPPRESSANT DRUG THERAPY
     Dosage: 0.35 MG/KG, QD
  6. ANTILYMPHOCYTE GLOBULIN (ANTILYMPHOCYTE) IMMUNOGLOBULIN (HORSE)) [Suspect]
     Indication: IMMUNOSUPPRESSANT DRUG THERAPY

REACTIONS (11)
  - BRAIN NEOPLASM [None]
  - COMA [None]
  - CONVULSION [None]
  - CRANIAL NERVE PARALYSIS [None]
  - EPSTEIN-BARR VIRUS INFECTION [None]
  - HEADACHE [None]
  - HEPATOMEGALY [None]
  - LEUKOPENIA [None]
  - LYMPHADENOPATHY [None]
  - SMOOTH MUSCLE CELL NEOPLASM [None]
  - SPLENOMEGALY [None]
